FAERS Safety Report 14723178 (Version 1)
Quarter: 2018Q2

REPORT INFORMATION
  Report Type: Spontaneous
  Country: FR (occurrence: FR)
  Receive Date: 20180405
  Receipt Date: 20180405
  Transmission Date: 20180711
  Serious: Yes (Other)
  Sender: FDA-Public Use
  Company Number: FR-TEVA-2018-FR-876370

PATIENT
  Age: 24 Year
  Sex: Female
  Weight: 68 kg

DRUGS (1)
  1. ZOLMITRIPTAN TEVA 2,5 MG, COMPRESSED ORODISPERSIBLE [Suspect]
     Active Substance: ZOLMITRIPTAN
     Indication: MIGRAINE
     Route: 048

REACTIONS (11)
  - Swelling face [Recovered/Resolved]
  - Myalgia [Recovered/Resolved]
  - Skin burning sensation [Recovered/Resolved]
  - Pyrexia [Recovered/Resolved]
  - Respiratory rate increased [Recovered/Resolved]
  - Migraine with aura [Recovered/Resolved]
  - Migraine [Recovered/Resolved]
  - Oropharyngeal pain [Recovered/Resolved]
  - Pain in jaw [Recovered/Resolved]
  - Heart rate increased [Recovered/Resolved]
  - Intracranial pressure increased [Recovered/Resolved]
